FAERS Safety Report 13829563 (Version 6)
Quarter: 2018Q1

REPORT INFORMATION
  Report Type: Report from Study
  Country: None (occurrence: RO)
  Receive Date: 20170803
  Receipt Date: 20180122
  Transmission Date: 20180508
  Serious: Yes (Hospitalization)
  Sender: FDA-Public Use
  Company Number: RO-ABBVIE-16P-135-1826594-00

PATIENT
  Sex: Male

DRUGS (9)
  1. EXELON [Concomitant]
     Active Substance: RIVASTIGMINE TARTRATE
     Indication: DEMENTIA
     Route: 062
  2. MEMANTIN [Concomitant]
     Active Substance: MEMANTINE
     Indication: DEMENTIA
     Route: 048
  3. PRESTARIUM [Concomitant]
     Active Substance: PERINDOPRIL
     Indication: HYPERTENSION
  4. DUODOPA [Suspect]
     Active Substance: CARBIDOPA\LEVODOPA
     Indication: PRODUCT USED FOR UNKNOWN INDICATION
     Dosage: 16/24H; MD=6ML; CR=2.8ML; ED=1.5ML
     Route: 050
     Dates: start: 20140707
  5. LEPONEX [Concomitant]
     Active Substance: CLOZAPINE
     Indication: DEMENTIA
     Route: 048
  6. NORVASC [Concomitant]
     Active Substance: AMLODIPINE BESYLATE
     Indication: HYPERTENSION
  7. DUODOPA [Suspect]
     Active Substance: CARBIDOPA\LEVODOPA
     Dosage: 16/24?CR-2.9?ED-1.8
     Route: 050
     Dates: end: 20171201
  8. AZILECT [Concomitant]
     Active Substance: RASAGILINE MESYLATE
     Indication: PARKINSON^S DISEASE
     Route: 048
  9. MOTILIUM [Concomitant]
     Active Substance: DOMPERIDONE
     Indication: PRODUCT USED FOR UNKNOWN INDICATION

REACTIONS (11)
  - Incarcerated inguinal hernia [Recovering/Resolving]
  - Nausea [Recovered/Resolved]
  - Inguinal hernia [Not Recovered/Not Resolved]
  - Dementia [Not Recovered/Not Resolved]
  - Hallucination, auditory [Recovered/Resolved]
  - Hallucination, visual [Recovered/Resolved]
  - Device dislocation [Recovered/Resolved]
  - Aggression [Not Recovered/Not Resolved]
  - Subileus [Recovered/Resolved]
  - Vomiting [Recovered/Resolved]
  - Aggression [Not Recovered/Not Resolved]

NARRATIVE: CASE EVENT DATE: 201610
